FAERS Safety Report 17534634 (Version 2)
Quarter: 2020Q2

REPORT INFORMATION
  Report Type: Spontaneous
  Country: FR (occurrence: FR)
  Receive Date: 20200312
  Receipt Date: 20200409
  Transmission Date: 20200713
  Serious: No
  Sender: FDA-Public Use
  Company Number: FR-AKCEA THERAPEUTICS-2019IS001485

PATIENT

DRUGS (1)
  1. TEGSEDI [Suspect]
     Active Substance: INOTERSEN SODIUM
     Indication: PRODUCT USED FOR UNKNOWN INDICATION
     Dosage: 284 MG, UNK

REACTIONS (16)
  - Oedema peripheral [Recovered/Resolved]
  - Haemorrhage [Unknown]
  - Anxiety [Unknown]
  - Facial pain [Unknown]
  - Fear [Not Recovered/Not Resolved]
  - Contusion [Unknown]
  - Nail injury [Unknown]
  - Limb injury [Unknown]
  - Face oedema [Unknown]
  - Apathy [Unknown]
  - Migraine [Unknown]
  - Platelet count decreased [Unknown]
  - Fatigue [Not Recovered/Not Resolved]
  - Depressed mood [Unknown]
  - Cardiac pacemaker insertion [Unknown]
  - Joint swelling [Not Recovered/Not Resolved]

NARRATIVE: CASE EVENT DATE: 2019
